FAERS Safety Report 18793493 (Version 24)
Quarter: 2022Q1

REPORT INFORMATION
  Report Type: Spontaneous
  Country: GB (occurrence: GB)
  Receive Date: 20210127
  Receipt Date: 20220321
  Transmission Date: 20220424
  Serious: Yes (Death, Hospitalization, Other)
  Sender: FDA-Public Use
  Company Number: GB-MYLANLABS-2019M1117808

PATIENT
  Age: 59 Year
  Sex: Male

DRUGS (65)
  1. LORAZEPAM [Suspect]
     Active Substance: LORAZEPAM
     Indication: Schizophrenia
     Dosage: 1 MG
     Route: 048
  2. OLANZAPINE [Suspect]
     Active Substance: OLANZAPINE
     Indication: Schizophrenia
     Dosage: 15 MG
     Dates: start: 20040217
  3. OLANZAPINE [Suspect]
     Active Substance: OLANZAPINE
     Dosage: 2.5 MG
     Dates: start: 20080823
  4. OLANZAPINE [Suspect]
     Active Substance: OLANZAPINE
     Dosage: 10 MG
  5. OLANZAPINE [Suspect]
     Active Substance: OLANZAPINE
     Dosage: 15 MG
     Dates: start: 20060704
  6. OLANZAPINE [Suspect]
     Active Substance: OLANZAPINE
     Dosage: 1 MG
     Route: 048
  7. RISPERDAL [Suspect]
     Active Substance: RISPERIDONE
     Indication: Schizophrenia
     Dosage: 6 MG, QD (3 MG, 2X/DAY)
  8. RISPERDAL [Suspect]
     Active Substance: RISPERIDONE
     Dosage: 1 G, QD
  9. RISPERDAL [Suspect]
     Active Substance: RISPERIDONE
     Dosage: 2 MG, TWICE A DAY (BID)
  10. RISPERDAL [Suspect]
     Active Substance: RISPERIDONE
     Dosage: 1 MG, QD
  11. RISPERDAL [Suspect]
     Active Substance: RISPERIDONE
     Dosage: 2 MG, BID
  12. RISPERDAL [Suspect]
     Active Substance: RISPERIDONE
     Dosage: 3 MG, BID
  13. RISPERDAL [Suspect]
     Active Substance: RISPERIDONE
     Dosage: UNK
  14. ZUCLOPENTHIXOL ACETATE [Suspect]
     Active Substance: ZUCLOPENTHIXOL ACETATE
     Dosage: 400 MG, CYCLIC (400 MG, BIWEEKLY)
     Dates: start: 20030204, end: 20040217
  15. ZUCLOPENTHIXOL ACETATE [Suspect]
     Active Substance: ZUCLOPENTHIXOL ACETATE
     Dosage: 400 MG, WEEKLY
     Dates: start: 20040217, end: 20040601
  16. ZUCLOPENTHIXOL ACETATE [Suspect]
     Active Substance: ZUCLOPENTHIXOL ACETATE
     Dosage: 400 MG, CYCLIC (400 MG, BIWEEKLY)
     Dates: start: 20040601, end: 20041018
  17. ZUCLOPENTHIXOL ACETATE [Suspect]
     Active Substance: ZUCLOPENTHIXOL ACETATE
     Dosage: 300 MG, WEEKLY
     Route: 030
     Dates: start: 20091018
  18. ZUCLOPENTHIXOL ACETATE [Suspect]
     Active Substance: ZUCLOPENTHIXOL ACETATE
     Dosage: 400 MG, BIWEEKLY
     Dates: start: 20041018, end: 20041018
  19. ZUCLOPENTHIXOL ACETATE [Suspect]
     Active Substance: ZUCLOPENTHIXOL ACETATE
     Dosage: 300 MG, QD
     Route: 030
     Dates: start: 20091009
  20. ZUCLOPENTHIXOL ACETATE [Suspect]
     Active Substance: ZUCLOPENTHIXOL ACETATE
     Dosage: 400 MG, BIWEEKLY
     Route: 030
     Dates: start: 20091018
  21. CLOZARIL [Suspect]
     Active Substance: CLOZAPINE
     Indication: Schizophrenia
     Dosage: 6000 MG
     Route: 048
     Dates: start: 20100823
  22. CLOZARIL [Suspect]
     Active Substance: CLOZAPINE
     Dosage: 1 DF, 1X/DAY
     Dates: start: 2011
  23. CLOZARIL [Suspect]
     Active Substance: CLOZAPINE
     Dosage: 400 MG, 1X/DAY
     Route: 048
     Dates: start: 20191223
  24. CLOZARIL [Suspect]
     Active Substance: CLOZAPINE
     Dosage: 200 MG, BID
     Route: 048
     Dates: start: 20191209, end: 20191223
  25. CLOZARIL [Suspect]
     Active Substance: CLOZAPINE
     Dosage: 275 MG, QD
     Route: 048
     Dates: start: 20200521, end: 2020
  26. CLOZARIL [Suspect]
     Active Substance: CLOZAPINE
     Dosage: 50 MG, QD (MIDDAY)
  27. CLOZARIL [Suspect]
     Active Substance: CLOZAPINE
     Dosage: 300 MG, QD (PM)
     Route: 065
     Dates: start: 20191209, end: 20191223
  28. CLOZARIL [Suspect]
     Active Substance: CLOZAPINE
     Dosage: 100 MG, QD (AM)
     Dates: end: 20191223
  29. CLOZARIL [Suspect]
     Active Substance: CLOZAPINE
     Dosage: 275 MG, QD (PM)
  30. CLOZARIL [Suspect]
     Active Substance: CLOZAPINE
     Dosage: UNK
     Route: 048
     Dates: start: 20191223, end: 20191223
  31. CLOZARIL [Suspect]
     Active Substance: CLOZAPINE
     Dosage: 245 MG, 1X/DAY (AM)
     Dates: start: 2011
  32. CLOZARIL [Suspect]
     Active Substance: CLOZAPINE
     Dosage: 200 MG, BID
  33. CLOZARIL [Suspect]
     Active Substance: CLOZAPINE
     Dosage: UNK
     Route: 048
     Dates: start: 20200521, end: 2021
  34. CLOZARIL [Suspect]
     Active Substance: CLOZAPINE
     Dosage: 200 MG, BID
  35. CLOZARIL [Suspect]
     Active Substance: CLOZAPINE
     Dosage: 400 MG, DAILY
     Dates: start: 20191209, end: 20191223
  36. CLOZARIL [Suspect]
     Active Substance: CLOZAPINE
     Dosage: 245 MG
     Route: 048
     Dates: start: 20191209, end: 20191223
  37. CLOZARIL [Suspect]
     Active Substance: CLOZAPINE
     Dosage: 800 MG, 1X/DAY
     Route: 048
     Dates: start: 20100823
  38. CLOZARIL [Suspect]
     Active Substance: CLOZAPINE
     Dosage: 245 MG
     Route: 048
     Dates: start: 20200521
  39. CLOZARIL [Suspect]
     Active Substance: CLOZAPINE
     Dosage: UNK
     Dates: start: 20201207
  40. CLOZARIL [Suspect]
     Active Substance: CLOZAPINE
     Dosage: 400 MG DAILY
     Route: 048
     Dates: start: 20100823
  41. CLOZARIL [Suspect]
     Active Substance: CLOZAPINE
     Dosage: UNK
  42. CLOZARIL [Suspect]
     Active Substance: CLOZAPINE
     Dosage: 245 MG
     Route: 048
     Dates: start: 20191207, end: 20191207
  43. CLOZARIL [Suspect]
     Active Substance: CLOZAPINE
     Dosage: 100 MILLIGRAM, QD, AM
     Route: 065
  44. CLOZARIL [Suspect]
     Active Substance: CLOZAPINE
     Dosage: 6000 MG
     Route: 048
     Dates: start: 20200521
  45. CLOZARIL [Suspect]
     Active Substance: CLOZAPINE
     Dosage: 50 MG, 1X/DAY
     Route: 048
     Dates: start: 20191209, end: 20191223
  46. CLOZARIL [Suspect]
     Active Substance: CLOZAPINE
     Dosage: 300 MG PM
     Route: 048
  47. CLOZARIL [Suspect]
     Active Substance: CLOZAPINE
     Dosage: 400 MG, DAILY
     Route: 048
     Dates: start: 20201207
  48. CLOZARIL [Suspect]
     Active Substance: CLOZAPINE
     Dosage: 800 MG, 1X/DAY
     Route: 048
     Dates: start: 20201207
  49. CLOZARIL [Suspect]
     Active Substance: CLOZAPINE
     Dosage: 400 MG, DAILY
     Dates: start: 20191223, end: 20191223
  50. CHLORPROMAZINE [Suspect]
     Active Substance: CHLORPROMAZINE
     Indication: Schizophrenia
     Dosage: 75 MG
  51. HALOPERIDOL [Suspect]
     Active Substance: HALOPERIDOL
     Indication: Schizophrenia
     Dosage: 5 MG, BID (2X/DAY)
     Route: 048
  52. HALOPERIDOL [Suspect]
     Active Substance: HALOPERIDOL
     Dosage: 10 MG, 2X/DAY
     Route: 048
  53. HALOPERIDOL [Suspect]
     Active Substance: HALOPERIDOL
     Dosage: 5 MG, BID
     Route: 048
  54. HALOPERIDOL [Suspect]
     Active Substance: HALOPERIDOL
     Dosage: 10 MG, 2X/DAY
     Route: 048
  55. HALOPERIDOL [Suspect]
     Active Substance: HALOPERIDOL
     Dosage: 40 MG, QD (20 MG, BID)
     Route: 048
  56. HALOPERIDOL [Suspect]
     Active Substance: HALOPERIDOL
     Dosage: 20 MG, QD
     Route: 048
  57. HALOPERIDOL [Suspect]
     Active Substance: HALOPERIDOL
     Dosage: 20 MG, BID (10 MG, BID, AS REPORTED)
     Route: 048
  58. HALOPERIDOL [Suspect]
     Active Substance: HALOPERIDOL
     Dosage: 10 MG, QD
  59. HALOPERIDOL [Suspect]
     Active Substance: HALOPERIDOL
     Dosage: 5 MG QD
  60. LITHIUM [Suspect]
     Active Substance: LITHIUM
     Dosage: 1 G
     Route: 048
  61. LITHIUM [Suspect]
     Active Substance: LITHIUM
     Dosage: 2 G
  62. LITHIUM [Suspect]
     Active Substance: LITHIUM
     Dosage: 1 MG
     Route: 048
  63. LITHIUM [Suspect]
     Active Substance: LITHIUM
     Dosage: 6 MG, 1X/DAY
  64. ARIPIPRAZOLE [Suspect]
     Active Substance: ARIPIPRAZOLE
     Indication: Schizophrenia
     Dosage: 5 MG
  65. ZUCLOPENTHIXOL [Suspect]
     Active Substance: ZUCLOPENTHIXOL
     Dosage: 400 MG, BIWEEKLY
     Dates: start: 20040217, end: 20040601

REACTIONS (25)
  - Off label use [Fatal]
  - Disease progression [Fatal]
  - Extrapyramidal disorder [Unknown]
  - Incorrect dose administered [Unknown]
  - Delusion of grandeur [Unknown]
  - Platelet count decreased [Recovered/Resolved]
  - Affective disorder [Recovered/Resolved]
  - Schizophrenia [Not Recovered/Not Resolved]
  - Lymphocyte count decreased [Unknown]
  - Fatigue [Unknown]
  - Hallucination, auditory [Unknown]
  - Psychotic disorder [Recovered/Resolved]
  - Neutropenia [Recovered/Resolved]
  - Neutrophil count increased [Unknown]
  - Leukopenia [Recovered/Resolved with Sequelae]
  - Nasal discomfort [Recovered/Resolved]
  - Mucosal inflammation [Recovered/Resolved]
  - Dyspepsia [Recovered/Resolved]
  - Diarrhoea [Recovered/Resolved]
  - Nausea [Recovered/Resolved]
  - Cellulitis [Recovered/Resolved]
  - Neuropathy peripheral [Recovered/Resolved]
  - Fatigue [Not Recovered/Not Resolved]
  - Alopecia [Recovered/Resolved]
  - COVID-19 [Unknown]

NARRATIVE: CASE EVENT DATE: 20151101
